FAERS Safety Report 25307150 (Version 3)
Quarter: 2025Q3

REPORT INFORMATION
  Report Type: Spontaneous
  Country: BR (occurrence: BR)
  Receive Date: 20250513
  Receipt Date: 20250710
  Transmission Date: 20251020
  Serious: Yes (Other)
  Sender: NOVARTIS
  Company Number: BR-002147023-NVSC2025BR076031

PATIENT
  Age: 36 Year
  Sex: Female
  Weight: 90 kg

DRUGS (9)
  1. KISQALI [Suspect]
     Active Substance: RIBOCICLIB SUCCINATE
     Indication: Breast cancer
     Dosage: UNK, TID (3 TABLETS A DAY)
     Route: 048
     Dates: start: 202412
  2. KISQALI [Suspect]
     Active Substance: RIBOCICLIB SUCCINATE
     Indication: Metastases to lung
     Route: 065
     Dates: start: 202506
  3. KISQALI [Suspect]
     Active Substance: RIBOCICLIB SUCCINATE
     Indication: Cervix cancer metastatic
  4. LETROZOLE [Concomitant]
     Active Substance: LETROZOLE
     Indication: Breast cancer
     Dosage: 1 DOSAGE FORM, QD (WITH 30 TABLETS EUR)
     Route: 048
     Dates: start: 202412
  5. LETROZOLE [Concomitant]
     Active Substance: LETROZOLE
     Indication: Metastases to lung
     Route: 065
     Dates: start: 202506
  6. LETROZOLE [Concomitant]
     Active Substance: LETROZOLE
     Indication: Cervix cancer metastatic
  7. LOSARTAN [Concomitant]
     Active Substance: LOSARTAN
     Indication: Hypertension
     Dosage: UNK, BID (2 TABLETS IN DAY)
     Route: 048
     Dates: start: 2020
  8. HYDROCHLOROTHIAZIDE [Concomitant]
     Active Substance: HYDROCHLOROTHIAZIDE
     Indication: Hypertension
     Dosage: UNK, BID (1 TABLET IN A DAY)
     Route: 048
     Dates: start: 2020
  9. ZOMETA [Concomitant]
     Active Substance: ZOLEDRONIC ACID
     Indication: Mineral supplementation
     Dosage: 1 DOSAGE FORM, Q3MO (1 APPLICATION EVERY 3 MONTHS
     Route: 042
     Dates: start: 202503

REACTIONS (2)
  - Cytogenetic analysis abnormal [Recovered/Resolved]
  - Off label use [Unknown]

NARRATIVE: CASE EVENT DATE: 20250101
